FAERS Safety Report 5662151-3 (Version None)
Quarter: 2008Q1

REPORT INFORMATION
  Report Type: 
  Country: None (occurrence: None)
  Receive Date: 20080312
  Receipt Date: 20080219
  Transmission Date: 20080703
  Serious: No
  Sender: FDA-Public Use
  Company Number: US-BOEHRINGER INGELHEIM GMBH, GERMANY-2008-BP-02539BP

PATIENT
  Sex: Female

DRUGS (5)
  1. ZANTAC 150 [Suspect]
     Indication: GASTROOESOPHAGEAL REFLUX DISEASE
     Route: 048
     Dates: start: 20080218, end: 20080219
  2. DILTIAZEM [Concomitant]
  3. PREMARIN [Concomitant]
  4. WATER PILLS [Concomitant]
  5. LIBRIUM [Concomitant]

REACTIONS (1)
  - SALIVARY HYPERSECRETION [None]
